FAERS Safety Report 18022802 (Version 2)
Quarter: 2020Q3

REPORT INFORMATION
  Report Type: Spontaneous
  Country: JP (occurrence: JP)
  Receive Date: 20200714
  Receipt Date: 20200804
  Transmission Date: 20201103
  Serious: Yes (Congenital Anomaly, Other)
  Sender: FDA-Public Use
  Company Number: JP-009507513-2007JPN000886J

PATIENT
  Age: 58 Year
  Sex: Female

DRUGS (2)
  1. CUBICIN [Suspect]
     Active Substance: DAPTOMYCIN
     Indication: BACTERIAL INFECTION
     Dosage: 7.1 MG/KG X 0.5/DAY (ADMINISTERED EVERY OTHER DAY, TAKING INTO ACCOUNT RENAL FUNCTION)
     Route: 041
  2. CUBICIN [Suspect]
     Active Substance: DAPTOMYCIN
     Indication: BACTERAEMIA

REACTIONS (2)
  - Blood creatine phosphokinase increased [Recovering/Resolving]
  - Hypoxia [Unknown]
